FAERS Safety Report 12952866 (Version 1)
Quarter: 2016Q4

REPORT INFORMATION
  Report Type: Spontaneous
  Country: US (occurrence: US)
  Receive Date: 20161117
  Receipt Date: 20161117
  Transmission Date: 20170207
  Serious: Yes (Other)
  Sender: FDA-Public Use
  Company Number: US-PFIZER INC-2016529050

PATIENT
  Age: 18 Year
  Sex: Male

DRUGS (1)
  1. MORPHINE SULFATE. [Suspect]
     Active Substance: MORPHINE SULFATE
     Dosage: UNK (WHO SNORTED TWO LINES OF CRUSHED MORPHINE TABLETS)
     Route: 045

REACTIONS (2)
  - Deafness [Recovered/Resolved]
  - Intentional product misuse [Unknown]
